FAERS Safety Report 8567595-8 (Version None)
Quarter: 2012Q3

REPORT INFORMATION
  Report Type: 
  Country: None (occurrence: None)
  Receive Date: 20120803
  Receipt Date: 20120724
  Transmission Date: 20120928
  Serious: Yes (Hospitalization)
  Sender: FDA-Public Use
  Company Number: US-ACTELION-A-NJ2012-60715

PATIENT
  Age: 20 Year
  Sex: Male

DRUGS (3)
  1. COUMADIN [Concomitant]
  2. DIGOXIN [Concomitant]
  3. EPOPROSTENOL SODIUM [Suspect]
     Indication: PULMONARY ARTERIAL HYPERTENSION
     Dosage: 18 NG/KG, PER MIN
     Route: 041
     Dates: start: 20111209

REACTIONS (3)
  - SUTURE INSERTION [None]
  - CATHETER SITE ERYTHEMA [None]
  - CATHETER SITE SWELLING [None]
